FAERS Safety Report 9241920 (Version 2)
Quarter: 2013Q2

REPORT INFORMATION
  Report Type: Other
  Country: CH (occurrence: CH)
  Receive Date: 20130419
  Receipt Date: 20130604
  Transmission Date: 20140414
  Serious: Yes (Hospitalization, Other)
  Sender: FDA-Public Use
  Company Number: CH-BRISTOL-MYERS SQUIBB COMPANY-18765073

PATIENT
  Age: 46 Year
  Sex: Male

DRUGS (6)
  1. CARMUSTINE [Suspect]
     Indication: CENTRAL NERVOUS SYSTEM LYMPHOMA
     Route: 042
  2. CYTARABINE [Concomitant]
     Indication: CENTRAL NERVOUS SYSTEM LYMPHOMA
  3. THIOTEPA [Concomitant]
     Indication: CENTRAL NERVOUS SYSTEM LYMPHOMA
  4. METHOTREXATE [Concomitant]
     Indication: CENTRAL NERVOUS SYSTEM LYMPHOMA
  5. METHYLPREDNISOLONE [Concomitant]
     Indication: PREMEDICATION
  6. ONDANSETRON [Concomitant]
     Indication: PREMEDICATION

REACTIONS (3)
  - Acute coronary syndrome [Recovered/Resolved]
  - Hypertension [Recovered/Resolved]
  - Sinus tachycardia [Recovered/Resolved]
